FAERS Safety Report 5235455-6 (Version None)
Quarter: 2007Q1

REPORT INFORMATION
  Report Type: 
  Country: None (occurrence: None)
  Receive Date: 20070212
  Receipt Date: 20070212
  Transmission Date: 20070707
  Serious: Yes (Life-Threatening, Hospitalization, Other)
  Sender: FDA-Public Use
  Company Number: None

PATIENT
  Age: 39 Year
  Sex: Female
  Weight: 55.7924 kg

DRUGS (1)
  1. MIFEPREX [Suspect]
     Indication: ABORTION
     Dosage: SEE IMAGE
     Dates: start: 20061101, end: 20061103

REACTIONS (6)
  - ABASIA [None]
  - FEAR [None]
  - INFECTION [None]
  - MOBILITY DECREASED [None]
  - OSTEOMYELITIS [None]
  - PAIN [None]
